FAERS Safety Report 20471291 (Version 2)
Quarter: 2022Q1

REPORT INFORMATION
  Report Type: Spontaneous
  Country: DE (occurrence: DE)
  Receive Date: 20220214
  Receipt Date: 20220216
  Transmission Date: 20220423
  Serious: Yes (Other)
  Sender: FDA-Public Use
  Company Number: DE-ANIPHARMA-2022-DE-000019

PATIENT
  Age: 32 Year
  Sex: Female

DRUGS (5)
  1. ATACAND [Suspect]
     Active Substance: CANDESARTAN CILEXETIL
     Indication: Hypertension
     Dosage: 64 MG DAILY
     Route: 048
     Dates: start: 20210422, end: 20210630
  2. COMIRNATY [Concomitant]
     Active Substance: TOZINAMERAN
     Route: 030
     Dates: start: 20210623, end: 20210623
  3. FOLIC ACID [Concomitant]
     Active Substance: FOLIC ACID
     Dosage: 1.3 - 1.3 GESTATIONAL WEEK
     Route: 048
  4. METOPROLOL [Concomitant]
     Active Substance: METOPROLOL
     Dosage: TRIMESTER: PRECONCEPTIONAL
     Route: 048
  5. METHYLDOPA [Concomitant]
     Active Substance: METHYLDOPA
     Dosage: 375 MG DAILY
     Route: 048

REACTIONS (4)
  - Oligohydramnios [Recovered/Resolved]
  - Polyhydramnios [Recovered/Resolved]
  - Exposure during pregnancy [Recovered/Resolved]
  - Off label use [Recovered/Resolved]
